FAERS Safety Report 10428737 (Version 1)
Quarter: 2014Q3

REPORT INFORMATION
  Report Type: Spontaneous
  Country: US (occurrence: US)
  Receive Date: 20140903
  Receipt Date: 20140903
  Transmission Date: 20150326
  Serious: Yes (Other)
  Sender: FDA-Public Use
  Company Number: US-AMGEN-USASP2014066303

PATIENT
  Age: 68 Year
  Sex: Female

DRUGS (7)
  1. NAVELBIN [Concomitant]
     Indication: ENDOMETRIAL CANCER
     Dosage: UNK
  2. NAVELBIN [Concomitant]
     Indication: FALLOPIAN TUBE CANCER
  3. NEULASTA [Suspect]
     Active Substance: PEGFILGRASTIM
     Indication: PRODUCT USED FOR UNKNOWN INDICATION
     Dosage: UNK UNK, AFTER CHEMO
     Route: 065
  4. VITAMIN C [Concomitant]
     Active Substance: ASCORBIC ACID
     Dosage: UNK
  5. AVASTIN [Concomitant]
     Active Substance: BEVACIZUMAB
     Indication: FALLOPIAN TUBE CANCER
  6. AVASTIN [Concomitant]
     Active Substance: BEVACIZUMAB
     Indication: ENDOMETRIAL CANCER
     Dosage: UNK
  7. LIDOCAINE                          /00033402/ [Concomitant]
     Dosage: UNK

REACTIONS (2)
  - Malignant neoplasm progression [Unknown]
  - Neutrophil count abnormal [Unknown]
